FAERS Safety Report 5070322-2 (Version None)
Quarter: 2006Q3

REPORT INFORMATION
  Report Type: 
  Country: None (occurrence: None)
  Receive Date: 20060731
  Receipt Date: 20060718
  Transmission Date: 20061208
  Serious: Yes (Other)
  Sender: FDA-Public Use
  Company Number: 2006RR-03018

PATIENT
  Age: 84 Year
  Sex: Female
  Weight: 90 kg

DRUGS (8)
  1. METFORMIN HCL [Suspect]
     Indication: DIABETES MELLITUS
     Dosage: 1 G, BID, ORAL
     Route: 048
     Dates: start: 19990701
  2. AMITRIPTYLINE HCL [Concomitant]
  3. ASPIRIN [Concomitant]
  4. FLUVASTATIN [Concomitant]
  5. FUROSEMIDE [Concomitant]
  6. GLICLAZIDE [Concomitant]
  7. PERINDOPRIL ERBUMINE [Concomitant]
  8. THYROXINE [Concomitant]

REACTIONS (1)
  - VITAMIN B12 DEFICIENCY [None]
